FAERS Safety Report 5469994-X (Version None)
Quarter: 2007Q3

REPORT INFORMATION
  Report Type: 
  Country: None (occurrence: None)
  Receive Date: 20070927
  Receipt Date: 20070111
  Transmission Date: 20080115
  Serious: No
  Sender: FDA-Public Use
  Company Number: US-AMGEN-KDL206675

PATIENT
  Sex: Female

DRUGS (1)
  1. NEUPOGEN [Suspect]
     Indication: DRUG USE FOR UNKNOWN INDICATION

REACTIONS (4)
  - CHILLS [None]
  - CYANOSIS [None]
  - DYSPNOEA [None]
  - PYREXIA [None]
